FAERS Safety Report 7033312-6 (Version None)
Quarter: 2010Q4

REPORT INFORMATION
  Report Type: 
  Country: None (occurrence: None)
  Receive Date: 20101007
  Receipt Date: 20101001
  Transmission Date: 20110411
  Serious: Yes (Other)
  Sender: FDA-Public Use
  Company Number: B0677632A

PATIENT

DRUGS (3)
  1. ALKERAN [Suspect]
     Indication: STEM CELL TRANSPLANT
     Dosage: 50MG PER DAY
     Route: 042
     Dates: start: 20100825, end: 20100826
  2. CLIVARINE [Concomitant]
     Dates: start: 20100823, end: 20100826
  3. VICCLOX [Concomitant]
     Route: 065
     Dates: start: 20100825, end: 20100826

REACTIONS (1)
  - CONVULSION [None]
